FAERS Safety Report 12756714 (Version 2)
Quarter: 2016Q4

REPORT INFORMATION
  Report Type: Spontaneous
  Country: US (occurrence: US)
  Receive Date: 20160917
  Receipt Date: 20161019
  Transmission Date: 20170207
  Serious: No
  Sender: FDA-Public Use
  Company Number: US-B.I. PHARMACEUTICALS,INC./RIDGEFIELD-2016-BI-59950BP

PATIENT
  Age: 80 Year
  Sex: Male

DRUGS (2)
  1. PRADAXA [Concomitant]
     Active Substance: DABIGATRAN ETEXILATE MESYLATE
     Indication: ATRIAL FIBRILLATION
     Dosage: FORMULATION: CAPLET
     Route: 048
     Dates: start: 201607
  2. SPIRIVA [Suspect]
     Active Substance: TIOTROPIUM BROMIDE MONOHYDRATE
     Indication: CHRONIC OBSTRUCTIVE PULMONARY DISEASE
     Route: 055
     Dates: start: 2010

REACTIONS (7)
  - Dry mouth [Unknown]
  - Weight decreased [Unknown]
  - Tooth extraction [Recovered/Resolved]
  - Chronic obstructive pulmonary disease [Unknown]
  - Constipation [Unknown]
  - Decreased appetite [Unknown]
  - Memory impairment [Unknown]

NARRATIVE: CASE EVENT DATE: 201512
